FAERS Safety Report 23116613 (Version 12)
Quarter: 2024Q3

REPORT INFORMATION
  Report Type: Spontaneous
  Country: JP (occurrence: JP)
  Receive Date: 20231027
  Receipt Date: 20240731
  Transmission Date: 20241016
  Serious: Yes (Hospitalization)
  Sender: ARGENX BVBA
  Company Number: JP-ARGENX-2023-ARGX-JP003603

PATIENT

DRUGS (13)
  1. EFGARTIGIMOD ALFA [Suspect]
     Active Substance: EFGARTIGIMOD ALFA
     Indication: Myasthenia gravis
     Dosage: UNK
     Route: 042
     Dates: start: 202301
  2. EFGARTIGIMOD ALFA [Suspect]
     Active Substance: EFGARTIGIMOD ALFA
     Dosage: UNK
     Route: 042
     Dates: start: 20230405
  3. EFGARTIGIMOD ALFA [Suspect]
     Active Substance: EFGARTIGIMOD ALFA
     Dosage: UNK
     Route: 042
  4. EFGARTIGIMOD ALFA [Suspect]
     Active Substance: EFGARTIGIMOD ALFA
     Dosage: UNK
     Route: 042
     Dates: end: 20230710
  5. EFGARTIGIMOD ALFA [Suspect]
     Active Substance: EFGARTIGIMOD ALFA
     Dosage: UNK
     Route: 042
     Dates: start: 20230807
  6. EFGARTIGIMOD ALFA [Suspect]
     Active Substance: EFGARTIGIMOD ALFA
     Dosage: UNK
     Route: 042
  7. EFGARTIGIMOD ALFA [Suspect]
     Active Substance: EFGARTIGIMOD ALFA
     Dosage: UNK
     Route: 042
     Dates: start: 2023, end: 20231120
  8. EFGARTIGIMOD ALFA [Suspect]
     Active Substance: EFGARTIGIMOD ALFA
     Dosage: UNK
     Route: 042
  9. EFGARTIGIMOD ALFA [Suspect]
     Active Substance: EFGARTIGIMOD ALFA
     Dosage: UNK
     Route: 042
     Dates: start: 20240122
  10. EFGARTIGIMOD ALFA [Suspect]
     Active Substance: EFGARTIGIMOD ALFA
     Dosage: UNK
     Route: 042
     Dates: start: 20240611, end: 20240625
  11. PREDONINE [Concomitant]
     Active Substance: PREDNISOLONE
     Indication: Product used for unknown indication
     Dosage: 10 MG
     Route: 048
  12. PROGRAF [Concomitant]
     Active Substance: TACROLIMUS
     Indication: Product used for unknown indication
     Dosage: 3 MG
     Route: 048
  13. ISOTONIC SODIUM CHLORIDE SOLUTION [Concomitant]
     Active Substance: SODIUM CHLORIDE
     Indication: Product used for unknown indication
     Dosage: 500 ML
     Route: 041
     Dates: end: 20230710

REACTIONS (70)
  - Dysphagia [Unknown]
  - Mastication disorder [Unknown]
  - Dyslalia [Unknown]
  - Dyslalia [Unknown]
  - Dyslalia [Unknown]
  - Dyslalia [Unknown]
  - Dysphagia [Unknown]
  - Dyslalia [Unknown]
  - Dyspnoea [Unknown]
  - Palpitations [Recovered/Resolved]
  - Dizziness [Unknown]
  - Dizziness [Unknown]
  - Oropharyngeal pain [Unknown]
  - Feeling of despair [Unknown]
  - Dyspnoea [Unknown]
  - Muscular weakness [Unknown]
  - Lacrimation increased [Unknown]
  - Periorbital pain [Unknown]
  - Somnolence [Unknown]
  - Malaise [Unknown]
  - Muscular weakness [Unknown]
  - Dehydration [Unknown]
  - Movement disorder [Recovered/Resolved]
  - Dyspnoea [Unknown]
  - Palpitations [Unknown]
  - Gait disturbance [Unknown]
  - Mental disorder [Unknown]
  - Movement disorder [Unknown]
  - Bradykinesia [Unknown]
  - Dyspnoea [Unknown]
  - Emotional distress [Unknown]
  - Dysphagia [Unknown]
  - Diplopia [Unknown]
  - Dysphonia [Unknown]
  - Dyspnoea [Unknown]
  - Asthenia [Unknown]
  - Asthenia [Unknown]
  - Fatigue [Unknown]
  - Fatigue [Unknown]
  - Malaise [Unknown]
  - Dyspnoea [Unknown]
  - Palpitations [Unknown]
  - Dyspnoea [Unknown]
  - Blood pressure decreased [Unknown]
  - Myasthenia gravis [Unknown]
  - Dyslalia [Unknown]
  - Dysphagia [Unknown]
  - Dyspnoea [Unknown]
  - Dyspnoea [Unknown]
  - Herpes zoster [Unknown]
  - Fatigue [Unknown]
  - Discomfort [Unknown]
  - Adverse reaction [Unknown]
  - Asthenia [Unknown]
  - Pyrexia [Unknown]
  - Malaise [Unknown]
  - Dyspnoea [Recovering/Resolving]
  - Dysphagia [Recovering/Resolving]
  - Dyslalia [Unknown]
  - Anxiety [Unknown]
  - Dizziness [Unknown]
  - Dizziness [Unknown]
  - Dizziness [Unknown]
  - Dizziness [Unknown]
  - Procedural headache [Unknown]
  - Herpes zoster [Recovering/Resolving]
  - Drug ineffective [Unknown]
  - Drug ineffective [Unknown]
  - Intentional dose omission [Unknown]
  - Therapeutic product effect incomplete [Unknown]

NARRATIVE: CASE EVENT DATE: 20230325
